FAERS Safety Report 9873415 (Version 2)
Quarter: 2014Q1

REPORT INFORMATION
  Report Type: Spontaneous
  Country: US (occurrence: US)
  Receive Date: 20140206
  Receipt Date: 20140206
  Transmission Date: 20141002
  Serious: No
  Sender: FDA-Public Use
  Company Number: US-ACORDA-ACO_33527_2012

PATIENT
  Age: 52 Year
  Sex: Female
  Weight: 55.33 kg

DRUGS (8)
  1. AMPYRA [Suspect]
     Indication: GAIT DISTURBANCE
     Dosage: 10 MG, Q 12 HRS
     Route: 048
     Dates: start: 20121215, end: 201212
  2. AMPYRA [Suspect]
     Dosage: 10 MG, Q 12 HOURS
     Dates: start: 201212
  3. AMPYRA [Suspect]
     Dosage: 10 MG, Q 12 HRS
  4. AMPYRA [Suspect]
     Dosage: 10 MG, Q 12 HRS
     Dates: start: 20130128
  5. MULTIVITAMIN [Concomitant]
     Indication: PRODUCT USED FOR UNKNOWN INDICATION
     Dosage: UNK
  6. BACLOFEN [Concomitant]
     Indication: PRODUCT USED FOR UNKNOWN INDICATION
     Dosage: 10 MG, QD AT BEDTIME
  7. FLOMAX [Concomitant]
     Indication: URINARY RETENTION
     Dosage: UNK
  8. TYSABRI [Concomitant]
     Indication: PRODUCT USED FOR UNKNOWN INDICATION
     Dosage: UNK
     Dates: start: 201211

REACTIONS (2)
  - Nausea [Not Recovered/Not Resolved]
  - Drug dose omission [Unknown]
